FAERS Safety Report 7524599-1 (Version None)
Quarter: 2011Q2

REPORT INFORMATION
  Report Type: 
  Country: None (occurrence: None)
  Receive Date: 20110606
  Receipt Date: 20110523
  Transmission Date: 20111010
  Serious: Yes (Other)
  Sender: FDA-Public Use
  Company Number: DE-ELI_LILLY_AND_COMPANY-DE201105006539

PATIENT
  Age: 69 Year
  Sex: Female

DRUGS (2)
  1. CALCIUM +VIT D [Concomitant]
     Dosage: 600 MG, UNK
  2. FORTEO [Suspect]
     Indication: OSTEOPOROSIS
     Dosage: UNK, DAILY (1/D)
     Route: 058
     Dates: start: 20100204

REACTIONS (3)
  - BRAIN NEOPLASM [None]
  - INJECTION SITE PAIN [None]
  - DIZZINESS [None]
